FAERS Safety Report 13079545 (Version 2)
Quarter: 2017Q1

REPORT INFORMATION
  Report Type: Report from Study
  Country: BR (occurrence: BR)
  Receive Date: 20170103
  Receipt Date: 20170109
  Transmission Date: 20170428
  Serious: Yes (Hospitalization, Other)
  Sender: FDA-Public Use
  Company Number: BR-ALEXION-A201610501

PATIENT
  Age: 33 Year
  Sex: Female

DRUGS (2)
  1. SOLIRIS [Suspect]
     Active Substance: ECULIZUMAB
     Indication: HAEMOLYTIC URAEMIC SYNDROME
     Dosage: 900 MG, UNK
     Route: 042
     Dates: end: 20160805
  2. SOLIRIS [Suspect]
     Active Substance: ECULIZUMAB
     Dosage: 1200 MG, UNK
     Route: 042
     Dates: start: 20160813

REACTIONS (4)
  - Vaginal haemorrhage [Not Recovered/Not Resolved]
  - Wound secretion [Unknown]
  - Hospitalisation [Recovered/Resolved]
  - Incision site haematoma [Unknown]

NARRATIVE: CASE EVENT DATE: 20161219
